FAERS Safety Report 15895526 (Version 1)
Quarter: 2019Q1

REPORT INFORMATION
  Report Type: Spontaneous
  Country: FR (occurrence: FR)
  Receive Date: 20190131
  Receipt Date: 20190131
  Transmission Date: 20190417
  Serious: Yes (Hospitalization)
  Sender: FDA-Public Use
  Company Number: FR-PFIZER INC-2019037120

PATIENT
  Age: 52 Year
  Sex: Female

DRUGS (3)
  1. ABASAGLAR [Suspect]
     Active Substance: INSULIN GLARGINE
     Indication: TOXICITY TO VARIOUS AGENTS
     Dosage: 3 DF, UNK (2 TO 3 INJECTIONS)
     Route: 058
     Dates: start: 20181219
  2. ALPRAZOLAM. [Suspect]
     Active Substance: ALPRAZOLAM
     Indication: TOXICITY TO VARIOUS AGENTS
     Dosage: 12 DF, UNK
     Route: 048
     Dates: start: 20181219
  3. VICTOZA [Suspect]
     Active Substance: LIRAGLUTIDE
     Indication: TOXICITY TO VARIOUS AGENTS
     Dosage: 2 DF, UNK (1 TO 2 INJECTIONS)
     Route: 058
     Dates: start: 20181219

REACTIONS (4)
  - Intentional overdose [Recovered/Resolved]
  - Somnolence [Recovered/Resolved]
  - Toxicity to various agents [Recovered/Resolved]
  - Hypoglycaemia [Recovered/Resolved]

NARRATIVE: CASE EVENT DATE: 20181219
